FAERS Safety Report 4554153-5 (Version None)
Quarter: 2005Q1

REPORT INFORMATION
  Report Type: 
  Country: None (occurrence: None)
  Receive Date: 20050118
  Receipt Date: 20050113
  Transmission Date: 20050727
  Serious: Yes (Hospitalization)
  Sender: FDA-Public Use
  Company Number: FR-MERCK-0501FRA00041

PATIENT
  Age: 78 Year
  Sex: Female
  Weight: 50 kg

DRUGS (7)
  1. FOSAMAX [Suspect]
     Route: 048
     Dates: end: 20041101
  2. OMEPRAZOLE [Suspect]
     Route: 048
     Dates: end: 20041101
  3. NAFTAZONE [Suspect]
     Route: 048
     Dates: end: 20041101
  4. CELECOXIB [Suspect]
     Indication: OSTEOARTHRITIS
     Route: 048
     Dates: start: 20041013, end: 20041101
  5. CELIPROLOL HYDROCHLORIDE [Suspect]
     Route: 048
  6. CALCIUM CARBONATE AND CHOLECALCIFEROL [Concomitant]
     Route: 048
  7. NIAOULI OIL AND QUININE BENZOATE AND THIAMINE HYDROCHLORIDE [Suspect]
     Route: 048
     Dates: start: 20041013, end: 20041101

REACTIONS (4)
  - DERMATITIS BULLOUS [None]
  - ECCHYMOSIS [None]
  - PURPURA [None]
  - THROMBOCYTOPENIA [None]
